FAERS Safety Report 9210184 (Version 4)
Quarter: 2013Q4

REPORT INFORMATION
  Report Type: Spontaneous
  Country: US (occurrence: US)
  Receive Date: 20130404
  Receipt Date: 20131114
  Transmission Date: 20140711
  Serious: No
  Sender: FDA-Public Use
  Company Number: US-009507513-1303USA013181

PATIENT
  Age: 59 Year
  Sex: Female

DRUGS (1)
  1. AZASITE [Suspect]
     Dosage: 1 DROP INTO EACH EYE ONCE DAILY
     Route: 047
     Dates: start: 20130314

REACTIONS (5)
  - Inappropriate schedule of drug administration [Unknown]
  - Product packaging quantity issue [Unknown]
  - Product quality issue [Unknown]
  - Liquid product physical issue [Unknown]
  - No adverse event [Unknown]
